FAERS Safety Report 14410920 (Version 1)
Quarter: 2018Q1

REPORT INFORMATION
  Report Type: Spontaneous
  Country: SE (occurrence: SE)
  Receive Date: 20180119
  Receipt Date: 20180119
  Transmission Date: 20180509
  Serious: Yes (Other)
  Sender: FDA-Public Use
  Company Number: SE-TEVA-2018-SE-845203

PATIENT
  Age: 69 Year
  Sex: Male

DRUGS (1)
  1. ENALAPRIL [Suspect]
     Active Substance: ENALAPRIL
     Route: 048

REACTIONS (2)
  - Throat irritation [Recovered/Resolved]
  - Pharyngeal oedema [Recovered/Resolved]
